FAERS Safety Report 9491993 (Version 7)
Quarter: 2014Q1

REPORT INFORMATION
  Report Type: Report from Study
  Country: DE (occurrence: DE)
  Receive Date: 20130830
  Receipt Date: 20140211
  Transmission Date: 20141002
  Serious: Yes (Hospitalization, Other)
  Sender: FDA-Public Use
  Company Number: DE-TEVA-429300USA

PATIENT
  Age: 85 Year
  Sex: Male
  Weight: 69.8 kg

DRUGS (12)
  1. BENDAMUSTINE [Suspect]
     Indication: MALIGNANT LYMPHOID NEOPLASM
     Route: 042
     Dates: start: 20130627
  2. BENDAMUSTINE [Suspect]
     Route: 042
     Dates: start: 20130814
  3. PREDNISOLONE [Suspect]
     Indication: MALIGNANT LYMPHOID NEOPLASM
     Dates: start: 20130627
  4. PREDNISOLONE [Suspect]
     Dates: start: 20130813
  5. RITUXIMAB [Suspect]
     Indication: MALIGNANT LYMPHOID NEOPLASM
     Route: 042
     Dates: start: 20130627
  6. RITUXIMAB [Suspect]
     Route: 042
     Dates: start: 20130813
  7. FALITHROM [Concomitant]
     Dates: start: 20130823
  8. VERAPAMIL [Concomitant]
  9. VALSARTAN ACTAVIS [Concomitant]
     Dosage: 80/12.5 MG
     Dates: start: 20130823
  10. DIGITOXIN [Concomitant]
     Dates: start: 20130823
  11. TOREM [Concomitant]
     Dates: start: 20130823
  12. INNOHEP [Concomitant]
     Dates: start: 20130823

REACTIONS (2)
  - Pancytopenia [Recovered/Resolved]
  - Sepsis [Recovered/Resolved]
